FAERS Safety Report 9203952 (Version 1)
Quarter: 2013Q1

REPORT INFORMATION
  Report Type: Spontaneous
  Country: US (occurrence: None)
  Receive Date: 20130329
  Receipt Date: 20130329
  Transmission Date: 20140127
  Serious: Yes (Disabling)
  Sender: FDA-Public Use
  Company Number: None

PATIENT
  Age: 68 Year
  Sex: Female
  Weight: 52.3 kg

DRUGS (1)
  1. LEVOFLOXACIN [Suspect]
     Indication: LOCALISED INFECTION
     Dosage: 1 IN PM, 1 NEXT AM
     Route: 048
     Dates: start: 20111221, end: 20111222

REACTIONS (13)
  - Abdominal pain upper [None]
  - Malaise [None]
  - Tendon disorder [None]
  - Joint swelling [None]
  - Joint swelling [None]
  - Gait disturbance [None]
  - Joint stiffness [None]
  - Impaired work ability [None]
  - Pain [None]
  - Dyspnoea exertional [None]
  - Joint range of motion decreased [None]
  - Walking aid user [None]
  - Musculoskeletal stiffness [None]
